FAERS Safety Report 9591876 (Version 2)
Quarter: 2013Q4

REPORT INFORMATION
  Report Type: Report from Study
  Country: DE (occurrence: DE)
  Receive Date: 20131004
  Receipt Date: 20131024
  Transmission Date: 20140711
  Serious: Yes (Other)
  Sender: FDA-Public Use
  Company Number: DE-AMGEN-DEUCT2013069465

PATIENT
  Sex: 0

DRUGS (2)
  1. ETANERCEPT [Suspect]
     Indication: PRODUCT USED FOR UNKNOWN INDICATION
     Dosage: UNK
     Route: 065
  2. METHOTREXATE SODIUM [Concomitant]
     Dosage: UNK

REACTIONS (4)
  - Lymphocytic leukaemia [Unknown]
  - Lymphocytosis [Unknown]
  - Mitral valve incompetence [Unknown]
  - Aortic aneurysm [Unknown]
